FAERS Safety Report 7440636-7 (Version None)
Quarter: 2011Q2

REPORT INFORMATION
  Report Type: 
  Country: None (occurrence: None)
  Receive Date: 20110427
  Receipt Date: 20110419
  Transmission Date: 20111010
  Serious: Yes (Other)
  Sender: FDA-Public Use
  Company Number: DE-ABBOTT-11P-062-0720362-00

PATIENT
  Age: 76 Year
  Sex: Male
  Weight: 79 kg

DRUGS (14)
  1. ZEMPLAR [Suspect]
     Indication: HYPERPARATHYROIDISM SECONDARY
     Dosage: 7 MCG WEEKLY
     Route: 048
     Dates: start: 20091209
  2. EPOETIN ALFA [Concomitant]
     Indication: PRODUCT USED FOR UNKNOWN INDICATION
     Dosage: 500IE PER WEEK
  3. EPOETIN ALFA [Concomitant]
     Route: 042
     Dates: start: 20080805, end: 20091230
  4. METOPROLOLTARTRAT 50MG [Concomitant]
     Indication: PRODUCT USED FOR UNKNOWN INDICATION
     Dosage: DAILY DOSE: 100MG
     Route: 048
     Dates: start: 20091123
  5. TORSEMIDE [Concomitant]
     Indication: PRODUCT USED FOR UNKNOWN INDICATION
     Dosage: DAILY DOSE: 5MG
     Route: 048
     Dates: start: 20070523
  6. SEVELAMER [Concomitant]
     Indication: PRODUCT USED FOR UNKNOWN INDICATION
     Dosage: 4000MG/DL
  7. SEVELAMER [Concomitant]
     Dosage: 800MG ORAL ,4000MG PER DAY
     Route: 048
     Dates: start: 20090821
  8. RAMIPRIL [Concomitant]
     Indication: PRODUCT USED FOR UNKNOWN INDICATION
     Dosage: DAILY DOSE: 5MG
     Route: 048
     Dates: start: 20090810
  9. DUTASTERIDE [Concomitant]
     Indication: PRODUCT USED FOR UNKNOWN INDICATION
     Dosage: DAILY DOSE: 0.5MG
     Route: 048
     Dates: start: 20070131
  10. SIMVASTATIN [Concomitant]
     Indication: PRODUCT USED FOR UNKNOWN INDICATION
     Dosage: DAILY DOSE: 20MG
     Route: 048
     Dates: start: 20090302
  11. DREISAVIT/N ORAL VITAMIN COMPLEX [Concomitant]
     Indication: PRODUCT USED FOR UNKNOWN INDICATION
     Dosage: 1 TABLET PER DAY
     Route: 048
     Dates: start: 20070116
  12. ALPHACALCIDOL [Concomitant]
     Indication: PRODUCT USED FOR UNKNOWN INDICATION
     Dosage: 4.5 MCG WEEKLY
     Route: 048
  13. FERRLECIT [Concomitant]
     Indication: PRODUCT USED FOR UNKNOWN INDICATION
     Dosage: 40MG PER WEEK
     Route: 042
     Dates: start: 20080408
  14. ACETYLIC ACID 1000MG [Concomitant]
     Indication: PRODUCT USED FOR UNKNOWN INDICATION
     Dosage: DAILY DOSE: 100MG
     Route: 048
     Dates: start: 20090807

REACTIONS (1)
  - ATRIAL FIBRILLATION [None]
